FAERS Safety Report 6801699-2 (Version None)
Quarter: 2010Q2

REPORT INFORMATION
  Report Type: 
  Country: None (occurrence: None)
  Receive Date: 20100629
  Receipt Date: 20100618
  Transmission Date: 20101027
  Serious: Yes (Other)
  Sender: FDA-Public Use
  Company Number: US-JNJCH-2010014836

PATIENT
  Age: 5 Year
  Sex: Male
  Weight: 18.1 kg

DRUGS (1)
  1. CHILDREN'S BENADRYL ALLERGY [Suspect]
     Indication: HYPERSENSITIVITY
     Dosage: TEXT:ONE TWICE WITHIN FIVE MINUTES
     Route: 048
     Dates: start: 20100616, end: 20100616

REACTIONS (5)
  - HEAD TITUBATION [None]
  - INCORRECT DOSE ADMINISTERED [None]
  - OFF LABEL USE [None]
  - TREMOR [None]
  - WRONG DRUG ADMINISTERED [None]
